FAERS Safety Report 6091777-0 (Version None)
Quarter: 2009Q1

REPORT INFORMATION
  Report Type: 
  Country: None (occurrence: None)
  Receive Date: 20090225
  Receipt Date: 20080610
  Transmission Date: 20090719
  Serious: No
  Sender: FDA-Public Use
  Company Number: A0732242A

PATIENT
  Age: 90 Year
  Sex: Female

DRUGS (3)
  1. VALTREX [Suspect]
     Indication: HERPES ZOSTER
     Route: 048
     Dates: start: 20080101, end: 20080101
  2. COUMADIN [Concomitant]
  3. ZESTRIL [Concomitant]

REACTIONS (2)
  - HERPES ZOSTER [None]
  - POST HERPETIC NEURALGIA [None]
